FAERS Safety Report 11730984 (Version 1)
Quarter: 2015Q4

REPORT INFORMATION
  Report Type: Spontaneous
  Country: US (occurrence: US)
  Receive Date: 20151110
  Receipt Date: 20151110
  Transmission Date: 20160304
  Serious: No
  Sender: FDA-Public Use
  Company Number: US-ELI_LILLY_AND_COMPANY-US201202007239

PATIENT
  Age: 80 Year
  Sex: Female

DRUGS (1)
  1. FORTEO [Suspect]
     Active Substance: TERIPARATIDE
     Indication: SPINAL COLUMN STENOSIS
     Dosage: UNK, UNKNOWN
     Dates: start: 20100724

REACTIONS (3)
  - Spinal fracture [Unknown]
  - Pain [Unknown]
  - Off label use [Unknown]

NARRATIVE: CASE EVENT DATE: 20100724
